FAERS Safety Report 7050510-6 (Version None)
Quarter: 2010Q4

REPORT INFORMATION
  Report Type: 
  Country: None (occurrence: None)
  Receive Date: 20101018
  Receipt Date: 20101007
  Transmission Date: 20110411
  Serious: Yes (Other)
  Sender: FDA-Public Use
  Company Number: US-PFIZER INC-2010128501

PATIENT
  Sex: Female
  Weight: 63.492 kg

DRUGS (2)
  1. LYRICA [Suspect]
     Indication: BACK PAIN
     Dosage: 50 MG, 3X/DAY
     Route: 048
     Dates: start: 20100601
  2. LYRICA [Suspect]
     Indication: NERVE INJURY

REACTIONS (9)
  - DIZZINESS [None]
  - DRY MOUTH [None]
  - GINGIVAL SWELLING [None]
  - JOINT SWELLING [None]
  - PAIN [None]
  - SOMNOLENCE [None]
  - TENDON DISORDER [None]
  - TENDON PAIN [None]
  - WEIGHT INCREASED [None]
